FAERS Safety Report 6447551-6 (Version None)
Quarter: 2009Q4

REPORT INFORMATION
  Report Type: 
  Country: None (occurrence: None)
  Receive Date: 20091119
  Receipt Date: 20090610
  Transmission Date: 20100525
  Serious: Yes (Other)
  Sender: FDA-Public Use
  Company Number: US-AMGEN-COG347008

PATIENT
  Sex: Male
  Weight: 74 kg

DRUGS (2)
  1. ENBREL [Suspect]
     Indication: RHEUMATOID ARTHRITIS
     Route: 058
     Dates: start: 19981001
  2. METHOTREXATE [Concomitant]
     Route: 048

REACTIONS (4)
  - HEADACHE [None]
  - PNEUMONIA [None]
  - PULMONARY CONGESTION [None]
  - UPPER RESPIRATORY TRACT INFECTION [None]
